FAERS Safety Report 15533667 (Version 1)
Quarter: 2018Q4

REPORT INFORMATION
  Report Type: Spontaneous
  Country: IT (occurrence: IT)
  Receive Date: 20181019
  Receipt Date: 20181019
  Transmission Date: 20190205
  Serious: Yes (Hospitalization, Other)
  Sender: FDA-Public Use
  Company Number: IT-PFIZER INC-2018426789

PATIENT
  Age: 11 Year
  Sex: Female
  Weight: 43 kg

DRUGS (3)
  1. VANCOMYCIN HCL [Suspect]
     Active Substance: VANCOMYCIN HYDROCHLORIDE
     Indication: CELLULITIS ORBITAL
     Dosage: 2400 MG, 1X/DAY
     Route: 041
     Dates: start: 20180902, end: 20180924
  2. CEFTRIAXONE. [Concomitant]
     Active Substance: CEFTRIAXONE
     Indication: CELLULITIS ORBITAL
     Dosage: 2 G, 1X/DAY
     Route: 041
     Dates: start: 20180902, end: 20180920
  3. METRONIDAZOLE. [Concomitant]
     Active Substance: METRONIDAZOLE
     Indication: CELLULITIS ORBITAL
     Dosage: 900 MG, 1X/DAY
     Route: 041
     Dates: start: 20180912, end: 20180925

REACTIONS (5)
  - Localised oedema [Recovered/Resolved]
  - Vomiting [Recovered/Resolved]
  - Pyrexia [Recovered/Resolved]
  - Rash pruritic [Recovered/Resolved]
  - Stevens-Johnson syndrome [Recovered/Resolved]

NARRATIVE: CASE EVENT DATE: 20180923
